FAERS Safety Report 4669514-3 (Version None)
Quarter: 2005Q2

REPORT INFORMATION
  Report Type: 
  Country: None (occurrence: None)
  Receive Date: 20050523
  Receipt Date: 20050426
  Transmission Date: 20051028
  Serious: Yes (Congenital Anomaly)
  Sender: FDA-Public Use
  Company Number: FR-ROCHE-403306

PATIENT
  Sex: Male

DRUGS (1)
  1. PEGASYS [Suspect]
     Indication: HEPATITIS D
     Dosage: SOLUTION.
     Route: 058

REACTIONS (3)
  - ABORTION INDUCED [None]
  - FOETAL MALFORMATION [None]
  - TRANSMISSION OF DRUG VIA SEMEN [None]
